FAERS Safety Report 6532331-3 (Version None)
Quarter: 2010Q1

REPORT INFORMATION
  Report Type: 
  Country: None (occurrence: None)
  Receive Date: 20100108
  Receipt Date: 20091228
  Transmission Date: 20100710
  Serious: Yes (Hospitalization)
  Sender: FDA-Public Use
  Company Number: FR-WATSON-2009-11014

PATIENT
  Age: 72 Year
  Sex: Male

DRUGS (3)
  1. COLCHICINE (WATSON LABORATORIES) [Suspect]
     Indication: GOUT
     Dosage: UNK
     Dates: start: 20070221
  2. CLARITHROMYCIN [Suspect]
     Indication: BRONCHITIS
     Dosage: UNK
     Dates: start: 20070221
  3. COLCHIMAX                          /01722001/ [Suspect]
     Indication: GOUT
     Dosage: UNK

REACTIONS (2)
  - DRUG INTERACTION [None]
  - POISONING [None]
